FAERS Safety Report 25447711 (Version 1)
Quarter: 2025Q2

REPORT INFORMATION
  Report Type: Spontaneous
  Country: MX (occurrence: MX)
  Receive Date: 20250617
  Receipt Date: 20250617
  Transmission Date: 20250717
  Serious: Yes (Other)
  Sender: UCB
  Company Number: MX-UCBSA-2025035062

PATIENT
  Age: 8 Year
  Sex: Male

DRUGS (1)
  1. VIMPAT [Suspect]
     Active Substance: LACOSAMIDE
     Indication: Product used for unknown indication
     Dosage: 50 MILLIGRAM, 2X/12 HOURS
     Dates: start: 2025

REACTIONS (2)
  - Craniocerebral injury [Unknown]
  - Eye movement disorder [Unknown]

NARRATIVE: CASE EVENT DATE: 20250601
